FAERS Safety Report 6854813-7 (Version None)
Quarter: 2010Q3

REPORT INFORMATION
  Report Type: 
  Country: None (occurrence: None)
  Receive Date: 20100717
  Receipt Date: 20080220
  Transmission Date: 20110219
  Serious: Yes (Other)
  Sender: FDA-Public Use
  Company Number: US-PFIZER INC-2008002553

PATIENT
  Sex: Male
  Weight: 107 kg

DRUGS (4)
  1. CHANTIX [Suspect]
     Indication: SMOKING CESSATION THERAPY
     Dates: start: 20070501
  2. TYLENOL [Concomitant]
  3. NEXIUM [Concomitant]
  4. ANTIPSORIATICS [Concomitant]

REACTIONS (6)
  - CONSTIPATION [None]
  - INCREASED APPETITE [None]
  - INSOMNIA [None]
  - NAUSEA [None]
  - NIGHTMARE [None]
  - WEIGHT INCREASED [None]
